FAERS Safety Report 23165721 (Version 2)
Quarter: 2023Q4

REPORT INFORMATION
  Report Type: Report from Study
  Country: US (occurrence: US)
  Receive Date: 20231109
  Receipt Date: 20231204
  Transmission Date: 20240110
  Serious: Yes (Death, Hospitalization, Other)
  Sender: FDA-Public Use
  Company Number: US-UCBSA-2023048480

PATIENT
  Sex: Female
  Weight: 71 kg

DRUGS (15)
  1. LACOSAMIDE [Suspect]
     Active Substance: LACOSAMIDE
     Indication: Epilepsy
     Dosage: 200 MILLIGRAM, 2X/DAY (BID)
     Route: 048
     Dates: start: 20230731, end: 20230802
  2. VITAMINS NOS [Concomitant]
     Active Substance: VITAMINS
     Indication: Product used for unknown indication
     Dosage: 50 PLUS TABLET, TAKE 1 TABLET BY ORAL ROUTE EVERY DAY
     Route: 048
  3. ELIQUIS [Concomitant]
     Active Substance: APIXABAN
     Indication: Product used for unknown indication
     Dosage: 5 MILLIGRAM 1 IN THE EVENING AND 1 IN THE MORNING
     Route: 048
  4. ASPIRIN [Concomitant]
     Active Substance: ASPIRIN
     Indication: Product used for unknown indication
     Dosage: 81 MILLIGRAM 1 MORNING AND 1 EVENING/CHEW 1 TABLET BY ORAL ROUTE EVERY DAY
     Route: 048
  5. ESCITALOPRAM [Concomitant]
     Active Substance: ESCITALOPRAM OXALATE
     Indication: Product used for unknown indication
     Dosage: 10 MILLIGRAM 1 IN MORNING/EVERY DAY
     Route: 048
  6. METOPROLOL TARTRATE [Concomitant]
     Active Substance: METOPROLOL TARTRATE
     Indication: Product used for unknown indication
     Dosage: 12 1/2 MGS, 1/2 TAKEN AT NIGHT, 25 MG TOTAL/TAKE 1/2 TABLET BY ORAL ROUTE IN THE AM AND 1/2 TABLET I
     Route: 048
  7. KEPPRA [Concomitant]
     Active Substance: LEVETIRACETAM
     Indication: Product used for unknown indication
     Dosage: 500 MILLIGRAM 3 TABLETS IN THE MORNING AND 3 TABLETS IN THE EVENING
     Route: 048
  8. CALCIUM +D3 AKTIV [Concomitant]
     Indication: Product used for unknown indication
     Dosage: CALCIUM 600 MILLIGRAM PLUS D3 1 MORNING AND 1 EVENING/1 - 2 TIMES EVERY DAY
     Route: 048
  9. ATORVASTATIN [Concomitant]
     Active Substance: ATORVASTATIN
     Indication: Product used for unknown indication
     Dosage: 40 MILLIGRAM 1 IN THE EVENING/EVERY DAY AT BEDTIME
     Route: 048
  10. PRIMIDONE [Concomitant]
     Active Substance: PRIMIDONE
     Indication: Product used for unknown indication
     Dosage: 250 MILLIGRAM 2 TABLETS IN THE EVENING/2QPM
  11. LUMIGAN [Concomitant]
     Active Substance: BIMATOPROST
     Indication: Product used for unknown indication
     Dosage: 1 DROP, 0.01 IN EACH EYE
  12. PROLIA [Concomitant]
     Active Substance: DENOSUMAB
     Indication: Product used for unknown indication
     Dosage: UNK EVERY 6 MONTHS
     Dates: start: 201604
  13. PREVAGEN [APOAEQUORIN] [Concomitant]
     Indication: Product used for unknown indication
     Dosage: 1 PILL AT DINNER
     Dates: start: 202012
  14. COVID-19 VACCINE [Concomitant]
     Indication: Product used for unknown indication
     Dosage: UNK, BIVALENT COVID 19 VACCINATION
  15. INFLUENZA VIRUS VACCINE [Concomitant]
     Active Substance: INFLUENZA VIRUS VACCINE
     Indication: Product used for unknown indication
     Dosage: UNK

REACTIONS (6)
  - Cerebrovascular accident [Fatal]
  - Cerebral haemorrhage [Fatal]
  - Cardiac fibrillation [Unknown]
  - COVID-19 immunisation [Unknown]
  - Influenza immunisation [Unknown]
  - Walking aid user [Unknown]

NARRATIVE: CASE EVENT DATE: 20230101
